FAERS Safety Report 14656789 (Version 1)
Quarter: 2018Q1

REPORT INFORMATION
  Report Type: Spontaneous
  Country: US (occurrence: US)
  Receive Date: 20180319
  Receipt Date: 20180319
  Transmission Date: 20180509
  Serious: Yes (Hospitalization)
  Sender: FDA-Public Use
  Company Number: US-SA-2017SA068455

PATIENT
  Age: 62 Year
  Sex: Male

DRUGS (1)
  1. NASACORT ALLERGY 24HR [Suspect]
     Active Substance: TRIAMCINOLONE ACETONIDE
     Indication: SEASONAL ALLERGY
     Dosage: 120 SPRAY ?DOSE: NOT KNOW HOW MANY SQUIRTS HE USED IN EACH NOSTRIL?SPRAY
     Route: 045
     Dates: start: 20170309, end: 20170313

REACTIONS (2)
  - Expired product administered [Unknown]
  - Influenza [Unknown]

NARRATIVE: CASE EVENT DATE: 20170313
